FAERS Safety Report 7635739-8 (Version None)
Quarter: 2011Q3

REPORT INFORMATION
  Report Type: 
  Country: None (occurrence: None)
  Receive Date: 20110726
  Receipt Date: 20110712
  Transmission Date: 20111222
  Serious: Yes (Hospitalization, Other)
  Sender: FDA-Public Use
  Company Number: PHHY2011KR62160

PATIENT

DRUGS (7)
  1. ALPRAZOLAM [Concomitant]
     Dosage: UNK UKN, UNK
  2. DEPAKENE [Concomitant]
     Dosage: UNK UKN, UNK
  3. VALPROIC ACID [Concomitant]
     Dosage: UNK UKN, UNK
  4. TICLOPIDINE HCL [Concomitant]
     Dosage: UNK UKN, UNK
  5. PHENYTOIN [Concomitant]
     Dosage: UNK UKN, UNK
     Route: 048
  6. CARBAMAZEPINE [Suspect]
     Dosage: UNK UKN, UNK
  7. AMLODIPINE BESYLATE [Concomitant]
     Dosage: UNK UKN, UNK

REACTIONS (11)
  - HYDROCEPHALUS [None]
  - HAEMORRHAGE [None]
  - DERMATITIS [None]
  - HEADACHE [None]
  - RASH ERYTHEMATOUS [None]
  - LYMPHADENOPATHY [None]
  - ATELECTASIS [None]
  - NECK PAIN [None]
  - PURPURA [None]
  - CONVULSION [None]
  - RASH FOLLICULAR [None]
